FAERS Safety Report 10817850 (Version 7)
Quarter: 2015Q2

REPORT INFORMATION
  Report Type: Spontaneous
  Country: US (occurrence: US)
  Receive Date: 20150218
  Receipt Date: 20150528
  Transmission Date: 20150821
  Serious: Yes (Disabling)
  Sender: FDA-Public Use
  Company Number: US-009507513-1205USA01866

PATIENT
  Sex: Male
  Weight: 80.91 kg

DRUGS (1)
  1. PROPECIA [Suspect]
     Active Substance: FINASTERIDE
     Indication: ALOPECIA
     Dosage: 1 MG, QD
     Route: 048
     Dates: start: 20071006, end: 20091121

REACTIONS (28)
  - Renal cyst [Unknown]
  - Orgasm abnormal [Unknown]
  - Vitamin D deficiency [Unknown]
  - Fatigue [Not Recovered/Not Resolved]
  - Tinnitus [Unknown]
  - Organic erectile dysfunction [Not Recovered/Not Resolved]
  - Epididymitis [Unknown]
  - Disturbance in sexual arousal [Unknown]
  - Drug ineffective [Unknown]
  - Sexual dysfunction [Not Recovered/Not Resolved]
  - Infectious mononucleosis [Unknown]
  - Acne [Unknown]
  - Premature ejaculation [Unknown]
  - Cognitive disorder [Not Recovered/Not Resolved]
  - Headache [Unknown]
  - Vertigo [Unknown]
  - Orchitis [Unknown]
  - Panic disorder [Unknown]
  - Asthma [Unknown]
  - Night sweats [Unknown]
  - Calculus urinary [Unknown]
  - Loss of libido [Unknown]
  - Anxiety [Not Recovered/Not Resolved]
  - Semen volume decreased [Unknown]
  - Depression [Not Recovered/Not Resolved]
  - Lethargy [Not Recovered/Not Resolved]
  - Platelet count decreased [Unknown]
  - Dysuria [Unknown]

NARRATIVE: CASE EVENT DATE: 2008
